FAERS Safety Report 21447069 (Version 1)
Quarter: 2022Q4

REPORT INFORMATION
  Report Type: Spontaneous
  Country: US (occurrence: None)
  Receive Date: 20221011
  Receipt Date: 20221011
  Transmission Date: 20230113
  Serious: Yes (Congenital Anomaly, Other)
  Sender: FDA-Public Use
  Company Number: None

PATIENT
  Age: 0 Year
  Sex: Male
  Weight: 2.7 kg

DRUGS (1)
  1. DESVENLAFAXINE [Suspect]
     Active Substance: DESVENLAFAXINE

REACTIONS (3)
  - Congenital anomaly [None]
  - Lip disorder [None]
  - Maternal drugs affecting foetus [None]

NARRATIVE: CASE EVENT DATE: 20190822
